FAERS Safety Report 6728902-1 (Version None)
Quarter: 2010Q2

REPORT INFORMATION
  Report Type: 
  Country: None (occurrence: None)
  Receive Date: 20100517
  Receipt Date: 20100302
  Transmission Date: 20101027
  Serious: No
  Sender: FDA-Public Use
  Company Number: US-ABBOTT-10P-163-0630283-00

PATIENT
  Sex: Male

DRUGS (1)
  1. SIMCOR [Suspect]
     Indication: BLOOD CHOLESTEROL INCREASED
     Dosage: 500/20 MG 1 IN 1 D
     Route: 048
     Dates: start: 20100201, end: 20100301

REACTIONS (5)
  - ERYTHEMA [None]
  - FLUSHING [None]
  - NAUSEA [None]
  - PALPITATIONS [None]
  - PRURITUS [None]
